FAERS Safety Report 17589022 (Version 1)
Quarter: 2020Q1

REPORT INFORMATION
  Report Type: Report from Study
  Country: CO (occurrence: CO)
  Receive Date: 20200327
  Receipt Date: 20200327
  Transmission Date: 20200409
  Serious: Yes (Life-Threatening, Other)
  Sender: FDA-Public Use
  Company Number: CO-ROCHE-2415464

PATIENT
  Sex: Female

DRUGS (5)
  1. XELODA [Suspect]
     Active Substance: CAPECITABINE
     Indication: PRODUCT USED FOR UNKNOWN INDICATION
     Dosage: 7 PILLS A DAY
     Route: 048
  2. XELODA [Suspect]
     Active Substance: CAPECITABINE
     Route: 048
  3. AVASTIN [Suspect]
     Active Substance: BEVACIZUMAB
     Indication: PRODUCT USED FOR UNKNOWN INDICATION
     Route: 065
  4. HERCEPTIN [Suspect]
     Active Substance: TRASTUZUMAB
     Route: 065
  5. HERCEPTIN [Suspect]
     Active Substance: TRASTUZUMAB
     Indication: PRODUCT USED FOR UNKNOWN INDICATION
     Route: 065

REACTIONS (27)
  - Headache [Unknown]
  - Lung disorder [Unknown]
  - Product administration error [Unknown]
  - Stomatitis [Unknown]
  - Drug ineffective [Unknown]
  - Diarrhoea [Unknown]
  - Terminal state [Unknown]
  - Pigmentation disorder [Unknown]
  - Weight decreased [Unknown]
  - Appetite disorder [Unknown]
  - Syncope [Unknown]
  - Vomiting [Unknown]
  - Cough [Unknown]
  - Depressed mood [Unknown]
  - Nausea [Unknown]
  - Erythema [Unknown]
  - Rash [Unknown]
  - Dizziness [Unknown]
  - Influenza [Unknown]
  - Skin discolouration [Unknown]
  - Feeling abnormal [Unknown]
  - General physical health deterioration [Unknown]
  - Metastases to lung [Unknown]
  - Blister [Unknown]
  - Nail discolouration [Unknown]
  - Epistaxis [Unknown]
  - Skin exfoliation [Unknown]
